FAERS Safety Report 6897712-7 (Version None)
Quarter: 2010Q3

REPORT INFORMATION
  Report Type: 
  Country: None (occurrence: None)
  Receive Date: 20100802
  Receipt Date: 20070925
  Transmission Date: 20110219
  Serious: No
  Sender: FDA-Public Use
  Company Number: US-PFIZER INC-2007060116

PATIENT
  Sex: Male

DRUGS (2)
  1. LYRICA [Suspect]
  2. REMERON [Interacting]

REACTIONS (2)
  - CRYING [None]
  - DRUG INTERACTION [None]
